FAERS Safety Report 15498278 (Version 1)
Quarter: 2018Q4

REPORT INFORMATION
  Report Type: Spontaneous
  Country: US (occurrence: US)
  Receive Date: 20181015
  Receipt Date: 20181015
  Transmission Date: 20190205
  Serious: No
  Sender: FDA-Public Use
  Company Number: US-AMGEN-USASP2018141244

PATIENT
  Age: 53 Year
  Sex: Male

DRUGS (1)
  1. AIMOVIG [Suspect]
     Active Substance: ERENUMAB-AOOE
     Indication: PRODUCT USED FOR UNKNOWN INDICATION
     Dosage: 70 MG, UNK
     Route: 065
     Dates: start: 20180911

REACTIONS (9)
  - Therapeutic response unexpected [Unknown]
  - Eating disorder [Recovering/Resolving]
  - Drug effect delayed [Unknown]
  - Cognitive disorder [Recovered/Resolved]
  - Dyspepsia [Recovering/Resolving]
  - Constipation [Not Recovered/Not Resolved]
  - Acne [Unknown]
  - Abdominal pain upper [Unknown]
  - Feeling abnormal [Recovered/Resolved]

NARRATIVE: CASE EVENT DATE: 201809
